FAERS Safety Report 9164683 (Version 1)
Quarter: 2013Q1

REPORT INFORMATION
  Report Type: Spontaneous
  Country: DK (occurrence: None)
  Receive Date: 20130226
  Receipt Date: 20130226
  Transmission Date: 20140127
  Serious: Yes (Other)
  Sender: FDA-Public Use
  Company Number: 2013MA001260

PATIENT
  Age: 59 Year
  Sex: Female

DRUGS (5)
  1. ACETAMINOPHEN + CODEINE PHOSPHATE ORAL SOLUTION USP, 120 MG/12 MG PER 5 ML (ALPHARMA) (GALENIC/PARACETAMOL/CODEINE/) [Suspect]
     Indication: PAIN IN EXTREMITY
     Route: 048
     Dates: start: 20120201
  2. SINEMET [Concomitant]
  3. DIAZEPAM [Concomitant]
  4. EVOREL CONTI [Concomitant]
  5. PARACETAMOL [Concomitant]

REACTIONS (2)
  - Drug withdrawal syndrome [None]
  - Dyspnoea [None]
